FAERS Safety Report 15695428 (Version 1)
Quarter: 2018Q4

REPORT INFORMATION
  Report Type: Report from Study
  Country: IT (occurrence: IT)
  Receive Date: 20181206
  Receipt Date: 20181206
  Transmission Date: 20190205
  Serious: Yes (Other)
  Sender: FDA-Public Use
  Company Number: IT-TEVA-2018-IT-983382

PATIENT
  Age: 45 Year
  Sex: Female

DRUGS (1)
  1. LANSOPRAZOLE. [Suspect]
     Active Substance: LANSOPRAZOLE
     Indication: GASTROOESOPHAGEAL REFLUX PROPHYLAXIS
     Route: 048
     Dates: start: 20181115, end: 20181115

REACTIONS (5)
  - Hypersensitivity [Recovered/Resolved]
  - Lip oedema [Recovered/Resolved]
  - Wheezing [Recovered/Resolved]
  - Erythema [Recovered/Resolved]
  - Dyspnoea [Recovered/Resolved]

NARRATIVE: CASE EVENT DATE: 20181116
